FAERS Safety Report 7891546-2 (Version None)
Quarter: 2011Q4

REPORT INFORMATION
  Report Type: 
  Country: None (occurrence: None)
  Receive Date: 20111103
  Receipt Date: 20110804
  Transmission Date: 20120403
  Serious: Yes (Hospitalization)
  Sender: FDA-Public Use
  Company Number: US-AMGEN-USASP2011036662

PATIENT
  Age: 85 Year
  Sex: Male

DRUGS (2)
  1. ENBREL [Suspect]
     Indication: PSORIASIS
     Dosage: 50 MG, QWK
     Dates: start: 20061121, end: 20110505
  2. ENBREL [Suspect]
     Dosage: 50 MG, QWK
     Dates: start: 20110702

REACTIONS (1)
  - STAPHYLOCOCCAL BACTERAEMIA [None]
